FAERS Safety Report 6094848-8 (Version None)
Quarter: 2009Q1

REPORT INFORMATION
  Report Type: 
  Country: None (occurrence: None)
  Receive Date: 20090227
  Receipt Date: 20090223
  Transmission Date: 20090719
  Serious: No
  Sender: FDA-Public Use
  Company Number: US-JNJFOC-20090206048

PATIENT
  Sex: Female

DRUGS (2)
  1. DURAGESIC-100 [Suspect]
     Indication: SPINAL COLUMN STENOSIS
     Route: 062
  2. HYDREA [Concomitant]
     Indication: PLATELET COUNT ABNORMAL
     Route: 048

REACTIONS (2)
  - DRUG PRESCRIBING ERROR [None]
  - NIGHT SWEATS [None]
